FAERS Safety Report 6400524-1 (Version None)
Quarter: 2009Q4

REPORT INFORMATION
  Report Type: 
  Country: None (occurrence: None)
  Receive Date: 20091014
  Receipt Date: 20091014
  Transmission Date: 20100525
  Serious: Yes (Other)
  Sender: FDA-Public Use
  Company Number: US-PFIZER INC-2009246401

PATIENT
  Sex: Female

DRUGS (2)
  1. DILANTIN [Suspect]
     Dosage: UNK
  2. TRILEPTAL [Suspect]
     Dosage: UNK

REACTIONS (4)
  - CONVULSION [None]
  - DRUG ADMINISTRATION ERROR [None]
  - GINGIVAL HYPERPLASIA [None]
  - MEMORY IMPAIRMENT [None]
